FAERS Safety Report 7754513-5 (Version None)
Quarter: 2011Q3

REPORT INFORMATION
  Report Type: 
  Country: None (occurrence: None)
  Receive Date: 20110915
  Receipt Date: 20110427
  Transmission Date: 20111222
  Serious: No
  Sender: FDA-Public Use
  Company Number: US-BAYER-2011-038465

PATIENT
  Sex: Female
  Weight: 74.83 kg

DRUGS (1)
  1. MAGNEVIST [Suspect]
     Indication: ANGIOGRAM
     Dosage: 15ML VIAL,LINE FLUSHED, POWER INJECTOR@ 2CC/SEC, RT ANTECUBITAL
     Route: 042
     Dates: start: 20110427, end: 20110427

REACTIONS (2)
  - THROAT IRRITATION [None]
  - ORAL PRURITUS [None]
